FAERS Safety Report 10523965 (Version 1)
Quarter: 2014Q4

REPORT INFORMATION
  Report Type: Report from Study
  Country: US (occurrence: US)
  Receive Date: 20141017
  Receipt Date: 20141017
  Transmission Date: 20150528
  Serious: Yes (Hospitalization, Other)
  Sender: FDA-Public Use
  Company Number: US-TEVA-515453USA

PATIENT
  Age: 45 Year
  Sex: Male

DRUGS (1)
  1. COPAXONE [Suspect]
     Active Substance: GLATIRAMER ACETATE
     Indication: MULTIPLE SCLEROSIS
     Dates: start: 20101230, end: 20140228

REACTIONS (2)
  - Myocardial infarction [Recovered/Resolved]
  - Enzyme abnormality [Recovered/Resolved]

NARRATIVE: CASE EVENT DATE: 20131228
